FAERS Safety Report 21961494 (Version 10)
Quarter: 2024Q1

REPORT INFORMATION
  Report Type: Spontaneous
  Country: CA (occurrence: CA)
  Receive Date: 20230207
  Receipt Date: 20240220
  Transmission Date: 20240410
  Serious: Yes (Hospitalization, Other)
  Sender: FDA-Public Use
  Company Number: CA-CELLTRION INC.-2022CA014173

PATIENT

DRUGS (16)
  1. INFLECTRA [Suspect]
     Active Substance: INFLIXIMAB-DYYB
     Indication: Crohn^s disease
     Dosage: 10MG/KG, INDUCTION AT 0, 1, 5 THEN EVERY 6 WEEKS (400 MG)
     Route: 042
     Dates: start: 20220819
  2. INFLECTRA [Suspect]
     Active Substance: INFLIXIMAB-DYYB
     Dosage: 400 MG, INDUCTION AT 0,1, 5 THEN EVERY 6 WEEKS
     Route: 042
     Dates: start: 20220819
  3. INFLECTRA [Suspect]
     Active Substance: INFLIXIMAB-DYYB
     Dosage: 400 MG, INDUCTION AT 0, 1, 5 THEN EVERY 6 WEEKS
     Route: 042
     Dates: start: 20220826
  4. INFLECTRA [Suspect]
     Active Substance: INFLIXIMAB-DYYB
     Dosage: 400 MG, INDUCTION AT WEEK 0,1 AND 5 WEEKS THEN EVERY 6 WEEKS
     Route: 042
     Dates: start: 20220923
  5. INFLECTRA [Suspect]
     Active Substance: INFLIXIMAB-DYYB
     Dosage: 400 MG, INDUCTION AT WEEK 0,1 AND 5 WEEKS THEN EVERY 6 WEEKS
     Route: 042
     Dates: start: 20221104, end: 20221104
  6. INFLECTRA [Suspect]
     Active Substance: INFLIXIMAB-DYYB
     Dosage: 400 MG, INDUCTION AT WEEK 0,1 AND 5 WEEKS THEN EVERY 6 WEEKS
     Route: 042
     Dates: start: 20221216, end: 20221216
  7. INFLECTRA [Suspect]
     Active Substance: INFLIXIMAB-DYYB
     Dosage: 400 MG EVERY 6 WEEKS (Q 0,1 AND 5 WEEKS THEN EVERY 6 WEEKS  )
     Route: 042
     Dates: start: 20230127, end: 20230127
  8. INFLECTRA [Suspect]
     Active Substance: INFLIXIMAB-DYYB
     Dosage: 400 MG EVERY 6 WEEKS
     Route: 042
     Dates: start: 20230310
  9. INFLECTRA [Suspect]
     Active Substance: INFLIXIMAB-DYYB
     Dosage: 400 MG EVERY 6 WEEKS
     Route: 042
     Dates: start: 20230602, end: 20230602
  10. INFLECTRA [Suspect]
     Active Substance: INFLIXIMAB-DYYB
     Dosage: 400 MG EVERY 6 WEEKS
     Route: 042
     Dates: start: 20230715, end: 20230715
  11. INFLECTRA [Suspect]
     Active Substance: INFLIXIMAB-DYYB
     Dosage: 400 MG, EVERY 6 WEEKS
     Route: 042
     Dates: start: 20230826, end: 20230826
  12. INFLECTRA [Suspect]
     Active Substance: INFLIXIMAB-DYYB
     Dosage: 400 MG, 0, 1 AND 5 WEEKS THEN EVERY 6 WEEKS (6 WEEKS)
     Route: 042
     Dates: start: 20231007
  13. INFLECTRA [Suspect]
     Active Substance: INFLIXIMAB-DYYB
     Dosage: 400 MG, EVERY 6 WEEKS
     Route: 042
     Dates: start: 20231117
  14. INFLECTRA [Suspect]
     Active Substance: INFLIXIMAB-DYYB
     Dosage: 400 MG, 0, 1 AND 5 WEEKS THEN EVERY 6 WEEKS (400MG, EVERY 6 WEEKS)
     Route: 042
     Dates: start: 20231229
  15. INFLECTRA [Suspect]
     Active Substance: INFLIXIMAB-DYYB
     Dosage: 400 MG, 0, 1 AND 5 WEEKS THEN EVERY 6 WEEKS (400MG, AFTER 6 WEEKS)
     Route: 042
     Dates: start: 20240209
  16. PREDNISONE [Concomitant]
     Active Substance: PREDNISONE
     Dosage: 1 DF
     Dates: start: 202208

REACTIONS (8)
  - Intestinal resection [Unknown]
  - Vomiting [Unknown]
  - Abdominal pain [Unknown]
  - Abscess [Unknown]
  - Intentional product use issue [Unknown]
  - Off label use [Unknown]
  - Off label use [Unknown]
  - Off label use [Unknown]

NARRATIVE: CASE EVENT DATE: 20220819
